FAERS Safety Report 24150109 (Version 1)
Quarter: 2024Q3

REPORT INFORMATION
  Report Type: Spontaneous
  Country: US (occurrence: US)
  Receive Date: 20240730
  Receipt Date: 20240730
  Transmission Date: 20241017
  Serious: Yes (Life-Threatening, Hospitalization, Other)
  Sender: MERCK
  Company Number: US-009507513-2407USA013378

PATIENT
  Age: 83 Year
  Sex: Male

DRUGS (1)
  1. TICE BCG [Suspect]
     Active Substance: BACILLUS CALMETTE-GUERIN SUBSTRAIN TICE LIVE ANTIGEN
     Indication: Bladder squamous cell carcinoma stage unspecified
     Dosage: UNK
     Route: 043

REACTIONS (1)
  - Disseminated Bacillus Calmette-Guerin infection [Unknown]
